FAERS Safety Report 25082928 (Version 1)
Quarter: 2025Q1

REPORT INFORMATION
  Report Type: Spontaneous
  Country: US (occurrence: US)
  Receive Date: 20250317
  Receipt Date: 20250317
  Transmission Date: 20250409
  Serious: No
  Sender: ABBVIE
  Company Number: US-ABBVIE-6178553

PATIENT
  Sex: Female

DRUGS (1)
  1. HUMIRA [Suspect]
     Active Substance: ADALIMUMAB
     Indication: Psoriatic arthropathy
     Route: 058

REACTIONS (7)
  - Accidental exposure to product [Unknown]
  - Injection site urticaria [Unknown]
  - Injection site erythema [Unknown]
  - Device leakage [Unknown]
  - Device deployment issue [Unknown]
  - Exposure via skin contact [Unknown]
  - Device delivery system issue [Unknown]
